FAERS Safety Report 9223123 (Version 4)
Quarter: 2014Q1

REPORT INFORMATION
  Report Type: Report from Study
  Country: US (occurrence: US)
  Receive Date: 20130410
  Receipt Date: 20140120
  Transmission Date: 20141002
  Serious: Yes (Death, Hospitalization, Other)
  Sender: FDA-Public Use
  Company Number: US-BAYER-2013-039974

PATIENT
  Age: 54 Year
  Sex: Male

DRUGS (10)
  1. STIVARGA [Suspect]
     Indication: COLON CANCER
     Dosage: DAILY DOSE 160 MG
     Route: 048
     Dates: start: 20130319, end: 20130324
  2. STIVARGA [Suspect]
     Indication: COLON CANCER
     Dosage: 3 TABLETS
     Dates: start: 20130325, end: 201303
  3. STIVARGA [Suspect]
     Indication: COLON CANCER
     Dosage: 160 MG, QD FOR 21 DAYS
     Route: 048
     Dates: end: 20130711
  4. XARELTO [Concomitant]
     Dosage: 10 MG, UNK
  5. METFORMIN [Concomitant]
     Dosage: 850 MG
  6. QUINAPRIL [Concomitant]
     Dosage: 10 MG
  7. ONGLYZA [Concomitant]
     Dosage: 2.5 MG
  8. MINOCYCLINE [Concomitant]
     Dosage: 50 MG
  9. MULTI-VIT [Concomitant]
  10. GLIPIZIDE [Concomitant]
     Dosage: 5 MG

REACTIONS (7)
  - Renal failure [Not Recovered/Not Resolved]
  - Tumour compression [Not Recovered/Not Resolved]
  - Dry skin [Unknown]
  - Pain of skin [Unknown]
  - Hypertension [Not Recovered/Not Resolved]
  - Blood creatinine increased [Not Recovered/Not Resolved]
  - Death [Fatal]
